FAERS Safety Report 9964373 (Version 4)
Quarter: 2014Q3

REPORT INFORMATION
  Report Type: Spontaneous
  Country: US (occurrence: US)
  Receive Date: 20140305
  Receipt Date: 20140919
  Transmission Date: 20150326
  Serious: Yes (Other)
  Sender: FDA-Public Use
  Company Number: US-PFIZER INC-2014062380

PATIENT
  Age: 53 Year
  Sex: Female
  Weight: 64.85 kg

DRUGS (4)
  1. NEURONTIN [Suspect]
     Active Substance: GABAPENTIN
     Dosage: UNK
     Route: 048
     Dates: end: 201404
  2. DILANTIN [Suspect]
     Active Substance: PHENYTOIN
     Indication: ANEURYSM
     Dosage: 300 MG, 3X/DAY
     Route: 048
  3. DILANTIN [Suspect]
     Active Substance: PHENYTOIN
     Indication: CONVULSION
  4. NEURONTIN [Suspect]
     Active Substance: GABAPENTIN
     Indication: ANEURYSM
     Dosage: 600 MG, 3X/DAY
     Route: 048
     Dates: start: 1996, end: 1997

REACTIONS (2)
  - Blood cholesterol increased [Unknown]
  - Convulsion [Unknown]

NARRATIVE: CASE EVENT DATE: 2014
